FAERS Safety Report 9419606 (Version 1)
Quarter: 2013Q3

REPORT INFORMATION
  Report Type: Spontaneous
  Country: FR (occurrence: FR)
  Receive Date: 20130725
  Receipt Date: 20130725
  Transmission Date: 20140515
  Serious: Yes (Hospitalization)
  Sender: FDA-Public Use
  Company Number: FR-ABBOTT-13P-056-1123933-00

PATIENT
  Age: 80 Year
  Sex: Male

DRUGS (1)
  1. ENANTONE [Suspect]
     Indication: PROSTATE CANCER
     Route: 042

REACTIONS (2)
  - Back pain [Not Recovered/Not Resolved]
  - Incorrect route of drug administration [Not Recovered/Not Resolved]
